FAERS Safety Report 23756047 (Version 1)
Quarter: 2024Q2

REPORT INFORMATION
  Report Type: Spontaneous
  Country: PL (occurrence: PL)
  Receive Date: 20240418
  Receipt Date: 20240418
  Transmission Date: 20240716
  Serious: Yes (Life-Threatening)
  Sender: FDA-Public Use
  Company Number: PL-BAYER-2024A054519

PATIENT
  Age: 29 Year
  Sex: Female
  Weight: 77 kg

DRUGS (1)
  1. GADOBUTROL [Suspect]
     Active Substance: GADOBUTROL
     Dosage: 0.1 MG PER 1 KG OF BODY WEIGHT
     Route: 042
     Dates: start: 20240411, end: 20240411

REACTIONS (5)
  - Loss of consciousness [Recovered/Resolved]
  - Cold sweat [Recovered/Resolved]
  - Pallor [Recovered/Resolved]
  - Feeling hot [Recovered/Resolved]
  - Dyspnoea [Recovered/Resolved]

NARRATIVE: CASE EVENT DATE: 20240411
